FAERS Safety Report 7434500-7 (Version None)
Quarter: 2011Q2

REPORT INFORMATION
  Report Type: 
  Country: None (occurrence: None)
  Receive Date: 20110425
  Receipt Date: 20110415
  Transmission Date: 20111010
  Serious: Yes (Death, Hospitalization)
  Sender: FDA-Public Use
  Company Number: US-GENZYME-CLOF-1001421

PATIENT
  Sex: Male

DRUGS (2)
  1. CLOLAR [Suspect]
     Indication: LYMPHOMA
     Dosage: 4 MG/M2, QDX5
     Route: 042
     Dates: start: 20080603, end: 20080607
  2. VANCOMYCIN [Concomitant]
     Indication: ANTIBIOTIC PROPHYLAXIS
     Dosage: 1000 MG, QD
     Route: 042
     Dates: start: 20080501

REACTIONS (4)
  - BONE MARROW FAILURE [None]
  - LEUKOPENIA [None]
  - THROMBOCYTOPENIA [None]
  - NEOPLASM MALIGNANT [None]
